FAERS Safety Report 24305475 (Version 1)
Quarter: 2024Q3

REPORT INFORMATION
  Report Type: Spontaneous
  Country: US (occurrence: US)
  Receive Date: 20240911
  Receipt Date: 20240911
  Transmission Date: 20241016
  Serious: Yes (Death, Other)
  Sender: ROCHE
  Company Number: US-ROCHE-10000073088

PATIENT
  Age: 5 Month
  Sex: Male

DRUGS (9)
  1. BEVACIZUMAB [Suspect]
     Active Substance: BEVACIZUMAB
     Indication: Angiosarcoma
     Dosage: ON DAY 1
     Route: 065
  2. GEMCITABINE [Suspect]
     Active Substance: GEMCITABINE
     Indication: Angiosarcoma
     Dosage: DAYS 1 AND 8
     Route: 065
  3. DOCETAXEL [Suspect]
     Active Substance: DOCETAXEL\DOCETAXEL ANHYDROUS
     Indication: Angiosarcoma
     Dosage: DAY 8
     Route: 065
  4. PROPRANOLOL [Concomitant]
     Active Substance: PROPRANOLOL HYDROCHLORIDE
  5. PROPRANOLOL [Concomitant]
     Active Substance: PROPRANOLOL HYDROCHLORIDE
  6. PROPRANOLOL [Concomitant]
     Active Substance: PROPRANOLOL HYDROCHLORIDE
  7. VINCRISTINE [Concomitant]
     Active Substance: VINCRISTINE
  8. SIROLIMUS [Concomitant]
     Active Substance: SIROLIMUS
  9. SORAFENIB [Concomitant]
     Active Substance: SORAFENIB

REACTIONS (3)
  - Lymphoedema [Recovered/Resolved]
  - Pleural effusion [Recovered/Resolved]
  - Disease progression [Fatal]
